FAERS Safety Report 4320132-6 (Version None)
Quarter: 2004Q1

REPORT INFORMATION
  Report Type: 
  Country: None (occurrence: None)
  Receive Date: 20040317
  Receipt Date: 20040303
  Transmission Date: 20041129
  Serious: No
  Sender: FDA-Public Use
  Company Number: 02100-UK-04-0003

PATIENT
  Age: 51 Year
  Sex: Female

DRUGS (9)
  1. CILOSTAZOL [Suspect]
     Indication: PERIPHERAL VASCULAR DISORDER
     Dosage: 100 MG, ORAL
     Route: 048
     Dates: start: 20040127, end: 20040202
  2. ASPIRIN [Concomitant]
  3. GAVISCON [Concomitant]
  4. BENDROFLUAZIDE [Concomitant]
  5. AMLODIPINE [Concomitant]
  6. FLUVASTATIN [Concomitant]
  7. LANSOPRAZOLE [Concomitant]
  8. MORPHINE [Concomitant]
  9. PARACETAMOL/HYDROCODEINE [Concomitant]

REACTIONS (4)
  - CONFUSIONAL STATE [None]
  - HEADACHE [None]
  - PALPITATIONS [None]
  - VOMITING [None]
